FAERS Safety Report 9168448 (Version 1)
Quarter: 2013Q1

REPORT INFORMATION
  Report Type: Spontaneous
  Country: US (occurrence: US)
  Receive Date: 20130318
  Receipt Date: 20130318
  Transmission Date: 20140127
  Serious: Yes (Other)
  Sender: FDA-Public Use
  Company Number: US-009507513-1303USA007750

PATIENT
  Sex: Female

DRUGS (4)
  1. PRINIVIL [Suspect]
  2. NORVASC [Concomitant]
     Dosage: UNK, BID
     Route: 048
  3. PREMARIN [Concomitant]
     Dosage: UNK, BID
     Route: 048
  4. SPIRONOLACTONE [Concomitant]

REACTIONS (1)
  - Hypersensitivity [Unknown]
